FAERS Safety Report 18367309 (Version 2)
Quarter: 2020Q4

REPORT INFORMATION
  Report Type: Spontaneous
  Country: US (occurrence: US)
  Receive Date: 20201009
  Receipt Date: 20201105
  Transmission Date: 20210114
  Serious: Yes (Hospitalization, Other)
  Sender: FDA-Public Use
  Company Number: US-ASTRAZENECA-2020SF27691

PATIENT
  Age: 20225 Day
  Sex: Male
  Weight: 89.4 kg

DRUGS (26)
  1. BYETTA [Concomitant]
     Active Substance: EXENATIDE
  2. FARXIGA [Suspect]
     Active Substance: DAPAGLIFLOZIN PROPANEDIOL
     Indication: TYPE 2 DIABETES MELLITUS
     Route: 048
     Dates: start: 20150521, end: 201601
  3. FARXIGA [Suspect]
     Active Substance: DAPAGLIFLOZIN PROPANEDIOL
     Indication: WEIGHT DECREASED
     Route: 048
     Dates: start: 20150521, end: 201601
  4. HYDROCODON/ACETAMINOPHEN [Concomitant]
  5. GLUCAGON. [Concomitant]
     Active Substance: GLUCAGON
  6. PROMETHAZINE [Concomitant]
     Active Substance: PROMETHAZINE HYDROCHLORIDE
  7. AMLODIPINE [Concomitant]
     Active Substance: AMLODIPINE BESYLATE
  8. SODIUM CHLORIDE. [Concomitant]
     Active Substance: SODIUM CHLORIDE
  9. ACETAMINOPHEN. [Concomitant]
     Active Substance: ACETAMINOPHEN
  10. NALOXONE [Concomitant]
     Active Substance: NALOXONE
  11. LORAZEPAM. [Concomitant]
     Active Substance: LORAZEPAM
  12. METFORMIN [Concomitant]
     Active Substance: METFORMIN HYDROCHLORIDE
  13. DIOVAN [Concomitant]
     Active Substance: VALSARTAN
  14. DEXTROSE. [Concomitant]
     Active Substance: DEXTROSE
  15. BALSUM [Concomitant]
  16. METOPROLOL TARTRATE. [Concomitant]
     Active Substance: METOPROLOL TARTRATE
  17. FARXIGA [Suspect]
     Active Substance: DAPAGLIFLOZIN PROPANEDIOL
     Indication: BLOOD PRESSURE ABNORMAL
     Route: 048
     Dates: start: 20150521, end: 201601
  18. ASPIRIN. [Concomitant]
     Active Substance: ASPIRIN
  19. POTASSIUM CHLORIDE. [Concomitant]
     Active Substance: POTASSIUM CHLORIDE
  20. CELEBREX [Concomitant]
     Active Substance: CELECOXIB
  21. CLOPIGREL [Concomitant]
  22. METFORMIN HYDROCHLORIDE. [Concomitant]
     Active Substance: METFORMIN HYDROCHLORIDE
  23. CYCLOBENZAPRINE HYDROCHLORIDE. [Concomitant]
     Active Substance: CYCLOBENZAPRINE HYDROCHLORIDE
  24. AZITHROMYCIN ANHYDROUS. [Concomitant]
     Active Substance: AZITHROMYCIN ANHYDROUS
  25. ENOXAPARIN [Concomitant]
     Active Substance: ENOXAPARIN
  26. FAMOTIDINE. [Concomitant]
     Active Substance: FAMOTIDINE

REACTIONS (8)
  - Urinary tract infection [Unknown]
  - Fournier^s gangrene [Unknown]
  - Necrotising fasciitis [Unknown]
  - Rectal abscess [Unknown]
  - Scrotal cellulitis [Unknown]
  - Scrotal abscess [Unknown]
  - Perirectal abscess [Unknown]
  - Sepsis [Unknown]

NARRATIVE: CASE EVENT DATE: 20160108
